FAERS Safety Report 9510986 (Version 1)
Quarter: 2013Q3

REPORT INFORMATION
  Report Type: Spontaneous
  Country: US (occurrence: None)
  Receive Date: 20130909
  Receipt Date: 20130909
  Transmission Date: 20140515
  Serious: Yes (Death)
  Sender: FDA-Public Use
  Company Number: None

PATIENT
  Age: 77 Year
  Sex: Female

DRUGS (1)
  1. XELODA [Suspect]
     Indication: BREAST CANCER
     Dosage: 2 TAB, BID, PO
     Route: 048
     Dates: start: 20130528, end: 20130815

REACTIONS (3)
  - Malignant neoplasm progression [None]
  - Breast cancer [None]
  - Unevaluable event [None]
